FAERS Safety Report 7459352-0 (Version None)
Quarter: 2011Q2

REPORT INFORMATION
  Report Type: 
  Country: None (occurrence: None)
  Receive Date: 20110504
  Receipt Date: 20110504
  Transmission Date: 20111010
  Serious: Yes (Life-Threatening, Hospitalization, Disabling, Other)
  Sender: FDA-Public Use
  Company Number: None

PATIENT
  Sex: Female
  Weight: 70.3075 kg

DRUGS (1)
  1. SIMVASTATIN [Suspect]
     Indication: BLOOD CHOLESTEROL
     Dosage: 80 MG. 1 @ DAY
     Dates: start: 20090726

REACTIONS (5)
  - MUSCLE SPASMS [None]
  - EXERCISE TOLERANCE DECREASED [None]
  - PARALYSIS [None]
  - HEPATIC ENZYME INCREASED [None]
  - ASTHENIA [None]
